FAERS Safety Report 10551683 (Version 1)
Quarter: 2014Q4

REPORT INFORMATION
  Report Type: Report from Study
  Country: BR (occurrence: BR)
  Receive Date: 20141029
  Receipt Date: 20141029
  Transmission Date: 20150529
  Serious: Yes (Hospitalization, Other)
  Sender: FDA-Public Use
  Company Number: BR-GLAXOSMITHKLINE-BR2014GSK008188

PATIENT
  Age: 72 Year
  Sex: Female
  Weight: 70 kg

DRUGS (3)
  1. RAMIPRIL. [Concomitant]
     Active Substance: RAMIPRIL
     Dosage: 1 UNK, QD
     Route: 048
     Dates: start: 201401, end: 20140604
  2. CARVEDILOL. [Concomitant]
     Active Substance: CARVEDILOL
     Dosage: 2 UNK, QD
     Route: 048
     Dates: start: 200801, end: 20140915
  3. FLUTICASONE PROPIONATE+SALMETEROL XINAFOATE [Suspect]
     Active Substance: FLUTICASONE PROPIONATE\SALMETEROL XINAFOATE
     Indication: RESPIRATORY DISORDER
     Dosage: 250/50 UG AT 1 PUFF(S), QD
     Route: 055
     Dates: start: 201403, end: 201406

REACTIONS (2)
  - Tachycardia [Recovered/Resolved]
  - Respiratory depression [Unknown]

NARRATIVE: CASE EVENT DATE: 201406
